FAERS Safety Report 5293735-2 (Version None)
Quarter: 2007Q2

REPORT INFORMATION
  Report Type: 
  Country: None (occurrence: None)
  Receive Date: 20070411
  Receipt Date: 20070402
  Transmission Date: 20071010
  Serious: Yes (Hospitalization)
  Sender: FDA-Public Use
  Company Number: AT-ABBOTT-07P-009-0363869-00

PATIENT
  Age: 29 Year
  Sex: Female
  Weight: 107 kg

DRUGS (1)
  1. REDUCTIL [Suspect]
     Indication: OBESITY
     Route: 048
     Dates: start: 20060701, end: 20070301

REACTIONS (4)
  - NECROTISING GRANULOMATOUS LYMPHADENITIS [None]
  - PYREXIA [None]
  - SEPSIS [None]
  - VASCULITIS [None]
